FAERS Safety Report 22384088 (Version 1)
Quarter: 2023Q2

REPORT INFORMATION
  Report Type: Spontaneous
  Country: US (occurrence: US)
  Receive Date: 20230530
  Receipt Date: 20230530
  Transmission Date: 20230721
  Serious: No
  Sender: FDA-Public Use
  Company Number: US-PERRIGO-23US003067

PATIENT
  Age: 57 Year
  Sex: Male
  Weight: 90.703 kg

DRUGS (3)
  1. MINOXIDIL [Suspect]
     Active Substance: MINOXIDIL
     Indication: Androgenetic alopecia
     Dosage: 1 CAPFUL, QOD
     Route: 061
     Dates: end: 202301
  2. MINOXIDIL [Suspect]
     Active Substance: MINOXIDIL
     Dosage: HALF BY HALF AREA, SINGLE
     Route: 061
     Dates: start: 202301, end: 202301
  3. MINOXIDIL [Suspect]
     Active Substance: MINOXIDIL
     Dosage: 1 CAPFUL, SINGLE
     Route: 061
     Dates: start: 202302, end: 202302

REACTIONS (11)
  - Chemical burn [Recovered/Resolved]
  - Application site discharge [Recovered/Resolved]
  - Application site exfoliation [Recovering/Resolving]
  - Application site burn [Recovered/Resolved]
  - Application site dryness [Recovered/Resolved]
  - Application site erythema [Recovered/Resolved]
  - Hair texture abnormal [Recovering/Resolving]
  - Accidental exposure to product [Unknown]
  - Incorrect dose administered [Unknown]
  - Product administered at inappropriate site [Unknown]
  - Inappropriate schedule of product administration [Unknown]

NARRATIVE: CASE EVENT DATE: 20221201
